FAERS Safety Report 9120908 (Version 1)
Quarter: 2013Q1

REPORT INFORMATION
  Report Type: Spontaneous
  Country: JP (occurrence: JP)
  Receive Date: 20130226
  Receipt Date: 20130226
  Transmission Date: 20140127
  Serious: Yes (Hospitalization)
  Sender: FDA-Public Use
  Company Number: JP-GLAXOSMITHKLINE-B0858123A

PATIENT
  Age: 27 Year
  Sex: Female

DRUGS (10)
  1. LAMICTAL [Suspect]
     Indication: BIPOLAR II DISORDER
     Dosage: 50MG PER DAY
     Route: 048
     Dates: start: 20121205, end: 20121225
  2. LIMAS [Concomitant]
     Indication: BIPOLAR II DISORDER
     Dosage: 400MG TWICE PER DAY
     Route: 048
  3. ABILIFY [Concomitant]
     Indication: BIPOLAR II DISORDER
     Dosage: 6MG PER DAY
     Route: 048
  4. CYMBALTA [Concomitant]
     Dosage: 40MG PER DAY
     Route: 048
     Dates: start: 20121215, end: 20121226
  5. AMOBAN [Concomitant]
     Indication: INSOMNIA
     Dosage: 10MG PER DAY
     Route: 048
  6. MYSLEE [Concomitant]
     Route: 048
  7. RESLIN [Concomitant]
     Route: 048
  8. DORAL [Concomitant]
     Route: 048
  9. MEILAX [Concomitant]
     Indication: ANXIETY
     Dosage: 1MG TWICE PER DAY
     Route: 048
  10. BIOFERMIN [Concomitant]
     Route: 048

REACTIONS (20)
  - Stevens-Johnson syndrome [Recovering/Resolving]
  - Epidermal necrosis [Unknown]
  - Erythema multiforme [Unknown]
  - Rash [Recovering/Resolving]
  - Ocular hyperaemia [Unknown]
  - Erythema of eyelid [Unknown]
  - Eye discharge [Unknown]
  - Conjunctivitis [Unknown]
  - Oral mucosa erosion [Unknown]
  - Lip erosion [Unknown]
  - Pyrexia [Unknown]
  - Lymphadenopathy [Unknown]
  - Lip swelling [Unknown]
  - Hypersensitivity [Unknown]
  - Eyelid oedema [Unknown]
  - Drug eruption [Unknown]
  - Dyspnoea [Unknown]
  - Vulvar erosion [Unknown]
  - Perivascular dermatitis [Unknown]
  - Skin degenerative disorder [Unknown]
